FAERS Safety Report 20541149 (Version 1)
Quarter: 2022Q1

REPORT INFORMATION
  Report Type: Report from Study
  Country: US (occurrence: US)
  Receive Date: 20220302
  Receipt Date: 20220302
  Transmission Date: 20220424
  Serious: Yes (Other)
  Sender: FDA-Public Use
  Company Number: US-TAKEDA-2022TUS013237

PATIENT
  Sex: Male
  Weight: 77 kg

DRUGS (3)
  1. BORTEZOMIB [Suspect]
     Active Substance: BORTEZOMIB
     Indication: Plasma cell myeloma
     Dosage: 2.4 MILLIGRAM, 1/WEEK
     Route: 065
     Dates: start: 20210118, end: 202106
  2. BORTEZOMIB [Suspect]
     Active Substance: BORTEZOMIB
     Dosage: UNK
     Route: 065
     Dates: start: 202107
  3. DARZALEX [Concomitant]
     Active Substance: DARATUMUMAB
     Indication: Chemotherapy
     Dosage: UNK
     Route: 065
     Dates: start: 20210621, end: 20211108

REACTIONS (6)
  - Haemorrhage [Unknown]
  - Renal impairment [Unknown]
  - Hypogeusia [Unknown]
  - Purpura [Unknown]
  - Weight fluctuation [Unknown]
  - Haemoglobin abnormal [Unknown]
